FAERS Safety Report 5027253-3 (Version None)
Quarter: 2006Q2

REPORT INFORMATION
  Report Type: 
  Country: None (occurrence: None)
  Receive Date: 20060501
  Receipt Date: 20060209
  Transmission Date: 20061013
  Serious: No
  Sender: FDA-Public Use
  Company Number: 200610832BWH

PATIENT
  Sex: 0

DRUGS (1)
  1. NEXAVAR [Suspect]

REACTIONS (4)
  - DERMATITIS ALLERGIC [None]
  - FACE OEDEMA [None]
  - RASH [None]
  - RASH ERYTHEMATOUS [None]
